FAERS Safety Report 22284856 (Version 4)
Quarter: 2023Q2

REPORT INFORMATION
  Report Type: Spontaneous
  Country: DE (occurrence: DE)
  Receive Date: 20230504
  Receipt Date: 20230530
  Transmission Date: 20230722
  Serious: Yes (Other)
  Sender: FDA-Public Use
  Company Number: DE-KOREA IPSEN Pharma-2023-09946

PATIENT
  Sex: Female

DRUGS (1)
  1. BOTULINUM TOXIN TYPE A [Suspect]
     Active Substance: BOTULINUM TOXIN TYPE A
     Indication: Skin cosmetic procedure
     Route: 065

REACTIONS (2)
  - Angioedema [Unknown]
  - Nasopharyngitis [Unknown]
